FAERS Safety Report 4340563-8 (Version None)
Quarter: 2004Q2

REPORT INFORMATION
  Report Type: 
  Country: None (occurrence: None)
  Receive Date: 20040414
  Receipt Date: 20040409
  Transmission Date: 20050107
  Serious: Yes (Disabling, Other)
  Sender: FDA-Public Use
  Company Number: NSADSS2001030937

PATIENT
  Age: 71 Year
  Sex: Female

DRUGS (7)
  1. REMICADE [Suspect]
     Indication: POLYARTHRITIS
     Dosage: 3 MG/KG, INTRAVENOUS DRIP
     Route: 041
     Dates: start: 20000701, end: 20000701
  2. REMICADE [Suspect]
     Indication: RHEUMATOID ARTHRITIS
     Dosage: 3 MG/KG, INTRAVENOUS DRIP
     Route: 041
     Dates: start: 20000701, end: 20000701
  3. REMICADE [Suspect]
     Indication: POLYARTHRITIS
     Dosage: 3 MG/KG, INTRAVENOUS DRIP
     Route: 041
     Dates: start: 20011001, end: 20011001
  4. REMICADE [Suspect]
     Indication: RHEUMATOID ARTHRITIS
     Dosage: 3 MG/KG, INTRAVENOUS DRIP
     Route: 041
     Dates: start: 20011001, end: 20011001
  5. METHYLPREDNISOLONE [Concomitant]
  6. LERCANIDIPINE [Concomitant]
  7. METHOTREXATE [Concomitant]

REACTIONS (2)
  - BACK PAIN [None]
  - EPENDYMOMA [None]
